FAERS Safety Report 5523525-4 (Version None)
Quarter: 2007Q4

REPORT INFORMATION
  Report Type: 
  Country: None (occurrence: None)
  Receive Date: 20071121
  Receipt Date: 20071026
  Transmission Date: 20080405
  Serious: Yes (Hospitalization)
  Sender: FDA-Public Use
  Company Number: TW-ROCHE-532197

PATIENT
  Age: 70 Year
  Sex: Female
  Weight: 53.5 kg

DRUGS (5)
  1. CAPECITABINE [Suspect]
     Indication: BREAST CANCER
     Dosage: 3000 MG, QD
     Route: 065
     Dates: start: 20060929
  2. BLINDED BEVACIZUMAB [Suspect]
     Indication: BREAST CANCER
     Dosage: 810 MG, Q3W
     Route: 042
     Dates: start: 20060929
  3. BLINDED PLACEBO [Suspect]
     Indication: BREAST CANCER
     Dosage: 810 MG, Q3W
     Route: 042
     Dates: start: 20060929
  4. AREDIA [Concomitant]
     Indication: DRUG USE FOR UNKNOWN INDICATION
  5. ZOMETA [Concomitant]
     Indication: DRUG USE FOR UNKNOWN INDICATION
     Dates: start: 20060101, end: 20070901

REACTIONS (1)
  - OSTEOMYELITIS [None]
